FAERS Safety Report 13227167 (Version 2)
Quarter: 2017Q2

REPORT INFORMATION
  Report Type: Report from Study
  Country: US (occurrence: US)
  Receive Date: 20170213
  Receipt Date: 20170518
  Transmission Date: 20170830
  Serious: No
  Sender: FDA-Public Use
  Company Number: US-009507513-1702USA004266

PATIENT
  Age: 69 Year
  Sex: Male

DRUGS (7)
  1. PREDNISONE. [Concomitant]
     Active Substance: PREDNISONE
  2. ALPRAZOLAM. [Concomitant]
     Active Substance: ALPRAZOLAM
     Dosage: 0.25 MG AS NEEDED
  3. OXYBUTYNIN [Concomitant]
     Active Substance: OXYBUTYNIN
     Dosage: 10 MG, QD
  4. CYANOCOBALAMIN. [Concomitant]
     Active Substance: CYANOCOBALAMIN
     Dosage: EVERY THREE WEEKS AFTER KEYTRUDA THERAPY
  5. OMEPRAZOLE. [Concomitant]
     Active Substance: OMEPRAZOLE
     Dosage: 40 MG, QD
  6. KEYTRUDA [Suspect]
     Active Substance: PEMBROLIZUMAB
     Indication: MALIGNANT MELANOMA STAGE IV
     Dosage: EVERY THREE WEEKS
     Route: 042
     Dates: start: 201606
  7. TAMSULOSIN HYDROCHLORIDE. [Concomitant]
     Active Substance: TAMSULOSIN HYDROCHLORIDE
     Dosage: 0.4 MG, QD

REACTIONS (16)
  - Oropharyngeal pain [Recovering/Resolving]
  - Vision blurred [Recovering/Resolving]
  - Diarrhoea [Recovering/Resolving]
  - Balance disorder [Recovering/Resolving]
  - Hypersomnia [Recovering/Resolving]
  - Feeling abnormal [Recovering/Resolving]
  - Nausea [Unknown]
  - Inflammation [Recovering/Resolving]
  - Flatulence [Recovering/Resolving]
  - Chest pain [Recovering/Resolving]
  - Proctalgia [Unknown]
  - Dry mouth [Unknown]
  - Urticaria [Recovering/Resolving]
  - Rash [Recovering/Resolving]
  - Abdominal discomfort [Recovering/Resolving]
  - Fatigue [Recovering/Resolving]

NARRATIVE: CASE EVENT DATE: 201606
